FAERS Safety Report 4798562-8 (Version None)
Quarter: 2005Q4

REPORT INFORMATION
  Report Type: 
  Country: None (occurrence: None)
  Receive Date: 20051014
  Receipt Date: 20051005
  Transmission Date: 20060501
  Serious: Yes (Other)
  Sender: FDA-Public Use
  Company Number: ES-MERCK-0510ESP00005

PATIENT
  Age: 72 Year
  Sex: Female

DRUGS (3)
  1. MAXALT [Suspect]
     Indication: MIGRAINE
     Route: 048
     Dates: start: 20040101
  2. AMITRIPTYLINE HYDROCHLORIDE [Concomitant]
     Route: 065
  3. STATIN (UNSPECIFIED) [Concomitant]
     Route: 065

REACTIONS (2)
  - DRUG ABUSER [None]
  - NO ADVERSE EFFECT [None]
